FAERS Safety Report 5909277-4 (Version None)
Quarter: 2008Q4

REPORT INFORMATION
  Report Type: 
  Country: None (occurrence: None)
  Receive Date: 20081006
  Receipt Date: 20080924
  Transmission Date: 20090506
  Serious: Yes (Disabling, Congenital Anomaly)
  Sender: FDA-Public Use
  Company Number: FR-PFIZER INC-2008076175

PATIENT
  Sex: Female

DRUGS (4)
  1. LYRICA [Suspect]
     Indication: NEURALGIA
     Dates: start: 20061028
  2. LAROXYL [Concomitant]
  3. DEROXAT [Concomitant]
  4. ALPRAZOLAM [Concomitant]

REACTIONS (6)
  - CEREBRAL DYSGENESIS [None]
  - DRUG EXPOSURE DURING PREGNANCY [None]
  - EYE DISORDER [None]
  - HYPERTONIA [None]
  - HYPOTONIA NEONATAL [None]
  - IIIRD NERVE PARALYSIS [None]
